FAERS Safety Report 9282808 (Version 1)
Quarter: 2013Q2

REPORT INFORMATION
  Report Type: Spontaneous
  Country: US (occurrence: None)
  Receive Date: 20130506
  Receipt Date: 20130506
  Transmission Date: 20140414
  Serious: Yes (Other)
  Sender: FDA-Public Use
  Company Number: FK201301392

PATIENT
  Age: 19 Year
  Sex: Female

DRUGS (9)
  1. MORPHINE (MANUFACTURER UNKNOWN) (MORPHINE) (MORPHINE) [Suspect]
     Indication: INTRACRANIAL PRESSURE INCREASED
     Dosage: 4MG BOLUS
  2. FENTANYL [Suspect]
     Indication: ANALGESIC THERAPY
  3. PROPRANOLOL HYDROCHLORIDE [Concomitant]
  4. MANNITOL [Concomitant]
  5. PROPOFOL [Concomitant]
  6. 23% SALINE [Concomitant]
  7. 3% SALINE SOLUTION [Concomitant]
  8. NEUROMUSCULAR PARALYSIS THERAPY [Concomitant]
  9. MIDAZOLAM [Concomitant]

REACTIONS (5)
  - Intracranial pressure increased [None]
  - Pyrexia [None]
  - Hypernatraemia [None]
  - Hypertension [None]
  - Tachycardia [None]
